FAERS Safety Report 13417910 (Version 1)
Quarter: 2017Q2

REPORT INFORMATION
  Report Type: Spontaneous
  Country: US (occurrence: US)
  Receive Date: 20170407
  Receipt Date: 20170407
  Transmission Date: 20170830
  Serious: No
  Sender: FDA-Public Use
  Company Number: US-009507513-1703USA012662

PATIENT
  Age: 29 Year
  Sex: Female
  Weight: 106.58 kg

DRUGS (1)
  1. NEXPLANON [Suspect]
     Active Substance: ETONOGESTREL
     Indication: CONTRACEPTION
     Dosage: 1 DF, 1 IMPLANT EVERY 3 YEARS
     Route: 059
     Dates: start: 20140219

REACTIONS (4)
  - Incorrect drug administration duration [Not Recovered/Not Resolved]
  - Headache [Unknown]
  - Migraine [Unknown]
  - Asthenia [Unknown]

NARRATIVE: CASE EVENT DATE: 2017
